FAERS Safety Report 12449007 (Version 1)
Quarter: 2016Q2

REPORT INFORMATION
  Report Type: Spontaneous
  Country: SE (occurrence: SE)
  Receive Date: 20160608
  Receipt Date: 20160608
  Transmission Date: 20160815
  Serious: Yes (Other)
  Sender: FDA-Public Use
  Company Number: SE-PFIZER INC-2016282440

PATIENT
  Sex: Female

DRUGS (1)
  1. DEPO-PROVERA [Suspect]
     Active Substance: MEDROXYPROGESTERONE ACETATE
     Dosage: UNK
     Route: 042
     Dates: start: 2000

REACTIONS (6)
  - Neoplasm [Unknown]
  - Antinuclear antibody positive [Unknown]
  - Incorrect route of drug administration [Unknown]
  - Sensory loss [Not Recovered/Not Resolved]
  - Antimitochondrial antibody positive [Unknown]
  - Hypoaesthesia [Not Recovered/Not Resolved]

NARRATIVE: CASE EVENT DATE: 2000
